FAERS Safety Report 4348543-3 (Version None)
Quarter: 2004Q2

REPORT INFORMATION
  Report Type: 
  Country: None (occurrence: None)
  Receive Date: 20040427
  Receipt Date: 20040423
  Transmission Date: 20050107
  Serious: Yes (Hospitalization)
  Sender: FDA-Public Use
  Company Number: US-BRISTOL-MYERS SQUIBB COMPANY-12569695

PATIENT
  Age: 89 Year
  Sex: Female
  Weight: 88 kg

DRUGS (1)
  1. GLUCOPHAGE [Suspect]
     Indication: DIABETES MELLITUS
     Route: 048
     Dates: end: 20040421

REACTIONS (3)
  - BACK PAIN [None]
  - METABOLIC ACIDOSIS [None]
  - VOMITING [None]
